FAERS Safety Report 4637405-X (Version None)
Quarter: 2005Q2

REPORT INFORMATION
  Report Type: 
  Country: None (occurrence: None)
  Receive Date: 20050418
  Receipt Date: 20040820
  Transmission Date: 20051028
  Serious: No
  Sender: FDA-Public Use
  Company Number: US-BRISTOL-MYERS SQUIBB COMPANY-12679114

PATIENT
  Age: 69 Year

DRUGS (4)
  1. HYDREA [Suspect]
     Indication: THROMBOCYTHAEMIA
     Dosage: THERAPY DATES: 04-MAR TO 05-APR-2004
     Route: 048
  2. PROTONIX [Concomitant]
     Dates: start: 20020201
  3. ASPIRIN [Concomitant]
     Dates: start: 20040101
  4. LOTREL [Concomitant]
     Dates: start: 20040301

REACTIONS (1)
  - RASH [None]
